FAERS Safety Report 8352813-1 (Version None)
Quarter: 2012Q2

REPORT INFORMATION
  Report Type: 
  Country: None (occurrence: None)
  Receive Date: 20120511
  Receipt Date: 20120427
  Transmission Date: 20120825
  Serious: Yes (Hospitalization)
  Sender: FDA-Public Use
  Company Number: US-MYLANLABS-2012S1008897

PATIENT
  Age: 79 Year
  Sex: Female

DRUGS (10)
  1. MIRTAZAPINE [Interacting]
     Indication: ANXIETY
     Route: 065
  2. GLYBURIDE [Interacting]
     Indication: TYPE 2 DIABETES MELLITUS
     Route: 048
  3. SERTRALINE HYDROCHLORIDE [Interacting]
     Indication: DEPRESSION
     Dosage: 150MG IN MORNING
     Route: 065
  4. METOPROLOL TARTRATE [Interacting]
     Indication: HYPERTENSION
     Route: 065
  5. MIRTAZAPINE [Interacting]
  6. MIRTAZAPINE [Interacting]
  7. MIRTAZAPINE [Interacting]
     Indication: DECREASED APPETITE
     Route: 065
  8. MIRTAZAPINE [Interacting]
  9. LORAZEPAM [Suspect]
     Indication: INSOMNIA
     Dosage: 0.5MG AT BEDTIME
     Route: 065
  10. MIRTAZAPINE [Interacting]
     Indication: INSOMNIA
     Route: 065

REACTIONS (7)
  - METABOLIC DISORDER [None]
  - COGNITIVE DISORDER [None]
  - ALCOHOLISM [None]
  - HYPERTENSION [None]
  - LETHARGY [None]
  - DRUG EFFECT DECREASED [None]
  - ALCOHOL INTERACTION [None]
